FAERS Safety Report 20966753 (Version 4)
Quarter: 2022Q3

REPORT INFORMATION
  Report Type: Spontaneous
  Country: PL (occurrence: PL)
  Receive Date: 20220616
  Receipt Date: 20220707
  Transmission Date: 20221026
  Serious: Yes (Other)
  Sender: FDA-Public Use
  Company Number: PL-002147023-NVSC2022PL126502

PATIENT
  Age: 38 Year
  Sex: Female

DRUGS (10)
  1. ZOLEDRONIC ACID [Suspect]
     Active Substance: ZOLEDRONIC ACID
     Indication: Product used for unknown indication
     Dosage: 4 MILLIGRAM (4 MG)
     Route: 042
  2. LETROZOLE [Suspect]
     Active Substance: LETROZOLE
     Indication: Product used for unknown indication
     Dosage: 2.5 MILLIGRAM, QD (2.5 MG, QD)
     Route: 065
     Dates: start: 202112
  3. CALCIUM LACTATE [Suspect]
     Active Substance: CALCIUM LACTATE
     Indication: Product used for unknown indication
     Dosage: UNK
     Route: 065
  4. KISQALI [Suspect]
     Active Substance: RIBOCICLIB
     Indication: Breast cancer
     Dosage: 600 MILLIGRAM, QD (600 MG, QD)
     Route: 065
  5. KISQALI [Suspect]
     Active Substance: RIBOCICLIB
     Dosage: 400 MILLIGRAM, QD (400 MG, QD)
     Route: 065
  6. ESTRADIOL [Suspect]
     Active Substance: ESTRADIOL
     Indication: Product used for unknown indication
     Dosage: UNK
     Route: 062
     Dates: start: 20210305
  7. VITAMIN D3 [Suspect]
     Active Substance: CHOLECALCIFEROL
     Indication: Product used for unknown indication
     Dosage: UNK
     Route: 065
  8. DENOSUMAB [Suspect]
     Active Substance: DENOSUMAB
     Indication: Product used for unknown indication
     Dosage: 120 MILLIGRAM, Q28D (120 MG EVERY 28 DAYS)
     Route: 058
     Dates: start: 202104
  9. GONADORELIN DIACETATE TETRAHYDRATE [Suspect]
     Active Substance: GONADORELIN DIACETATE TETRAHYDRATE
     Indication: Product used for unknown indication
     Dosage: 3.6 MILLIGRAM, Q28D (3.6 MG EVERY 28 DAYS)
     Route: 058
     Dates: start: 202112
  10. GONADORELIN DIACETATE TETRAHYDRATE [Suspect]
     Active Substance: GONADORELIN DIACETATE TETRAHYDRATE
     Dosage: UNK
     Route: 058

REACTIONS (4)
  - Alanine aminotransferase increased [Recovering/Resolving]
  - Neutropenia [Recovered/Resolved]
  - Aspartate aminotransferase increased [Recovering/Resolving]
  - Hepatic steatosis [Unknown]

NARRATIVE: CASE EVENT DATE: 20211201
